FAERS Safety Report 25330948 (Version 1)
Quarter: 2025Q2

REPORT INFORMATION
  Report Type: Spontaneous
  Country: US (occurrence: None)
  Receive Date: 20250517
  Receipt Date: 20250517
  Transmission Date: 20250716
  Serious: Yes (Hospitalization)
  Sender: FDA-CTU
  Company Number: None

PATIENT
  Age: 7 Year
  Sex: Female
  Weight: 19 kg

DRUGS (2)
  1. CYCLOPHOSPHAMIDE [Suspect]
     Active Substance: CYCLOPHOSPHAMIDE
  2. TOPOTECAN [Suspect]
     Active Substance: TOPOTECAN HYDROCHLORIDE

REACTIONS (12)
  - Pleural effusion [None]
  - Infusion related reaction [None]
  - Respiratory distress [None]
  - Pneumonia aspiration [None]
  - Hypervolaemia [None]
  - Febrile neutropenia [None]
  - Platelet count decreased [None]
  - Syncope [None]
  - Device intolerance [None]
  - Tumour haemorrhage [None]
  - Haemothorax [None]
  - Pain [None]

NARRATIVE: CASE EVENT DATE: 20250503
